FAERS Safety Report 8531724-2 (Version None)
Quarter: 2012Q3

REPORT INFORMATION
  Report Type: 
  Country: None (occurrence: None)
  Receive Date: 20120723
  Receipt Date: 20120713
  Transmission Date: 20120928
  Serious: Yes (Other)
  Sender: FDA-Public Use
  Company Number: US-ASTRAZENECA-2012SE49107

PATIENT
  Age: 41 Year
  Sex: Female

DRUGS (1)
  1. CRESTOR [Suspect]
     Route: 048

REACTIONS (5)
  - MOBILITY DECREASED [None]
  - INJURY [None]
  - IRRITABLE BOWEL SYNDROME [None]
  - GASTRIC DISORDER [None]
  - ROAD TRAFFIC ACCIDENT [None]
